FAERS Safety Report 11981422 (Version 3)
Quarter: 2016Q1

REPORT INFORMATION
  Report Type: Spontaneous
  Country: US (occurrence: US)
  Receive Date: 20160130
  Receipt Date: 20160201
  Transmission Date: 20160526
  Serious: Yes (Hospitalization, Other)
  Sender: FDA-Public Use
  Company Number: US-ZYDUS-010073

PATIENT
  Age: 49 Year
  Sex: Male

DRUGS (1)
  1. WARFARIN [Suspect]
     Active Substance: WARFARIN
     Indication: RENAL VEIN THROMBOSIS

REACTIONS (6)
  - Arthritis bacterial [Unknown]
  - Trigeminal neuralgia [Unknown]
  - Skull fractured base [Unknown]
  - Parotitis [Unknown]
  - Haemarthrosis [Unknown]
  - Lymphadenopathy [Recovered/Resolved]
